FAERS Safety Report 9057281 (Version 1)
Quarter: 2013Q1

REPORT INFORMATION
  Report Type: Report from Study
  Country: JP (occurrence: JP)
  Receive Date: 20130131
  Receipt Date: 20130131
  Transmission Date: 20140127
  Serious: Yes (Other)
  Sender: FDA-Public Use
  Company Number: JP-GLAXOSMITHKLINE-B0860451A

PATIENT
  Age: 80 None
  Sex: Male
  Weight: 63 kg

DRUGS (6)
  1. SERETIDE (50MCG/250MCG) [Suspect]
     Indication: EMPHYSEMA
     Dosage: 250MG TWICE PER DAY
     Route: 055
     Dates: start: 20091222
  2. SPIRIVA [Concomitant]
     Indication: EMPHYSEMA
     Route: 055
  3. LIPOVAS [Concomitant]
     Route: 048
     Dates: end: 20100222
  4. SIMVASTATIN [Concomitant]
     Route: 048
     Dates: start: 20100223
  5. AMARYL [Concomitant]
     Route: 048
     Dates: start: 20100406
  6. ACTOS [Concomitant]
     Route: 048
     Dates: start: 20100406

REACTIONS (2)
  - Diabetes mellitus [Recovering/Resolving]
  - Oral candidiasis [Recovered/Resolved]
